FAERS Safety Report 4323607-9 (Version None)
Quarter: 2004Q1

REPORT INFORMATION
  Report Type: 
  Country: None (occurrence: None)
  Receive Date: 20040322
  Receipt Date: 20040311
  Transmission Date: 20041129
  Serious: Yes (Hospitalization)
  Sender: FDA-Public Use
  Company Number: GB-JNJFOC-20040302605

PATIENT
  Age: 81 Year
  Sex: Male

DRUGS (6)
  1. REMICADE [Suspect]
     Indication: RHEUMATOID ARTHRITIS
     Dosage: 198 MG, INTRAVENOUS
     Route: 042
     Dates: start: 20020809
  2. METHOTREXATE [Concomitant]
  3. PREDNISOLONE [Concomitant]
  4. MOBIC [Concomitant]
  5. FOLIC ACID [Concomitant]
  6. CO-DYDRAMOL (PARAMOL-118) [Concomitant]

REACTIONS (1)
  - ENDOCARDITIS [None]
